FAERS Safety Report 26199209 (Version 1)
Quarter: 2025Q4

REPORT INFORMATION
  Report Type: Report from Study
  Country: EG (occurrence: EG)
  Receive Date: 20251225
  Receipt Date: 20251225
  Transmission Date: 20260118
  Serious: Yes (Hospitalization, Disabling, Other)
  Sender: ROCHE
  Company Number: EG-002147023-NVSC2025EG158369

PATIENT
  Age: 30 Year
  Sex: Female

DRUGS (2)
  1. XOLAIR [Suspect]
     Active Substance: OMALIZUMAB
     Indication: Asthma
     Dosage: 150 MG, OTHER (ONE INJECTION EVERY 2 WEEKS)
     Route: 058
     Dates: start: 202411, end: 202508
  2. XOLAIR [Suspect]
     Active Substance: OMALIZUMAB
     Indication: Urticaria
     Dosage: 150 MG, OTHER (ONE INJECTION EVERY 2 WEEKS) WEEK AFTER END DATE OF FIRST XOLAIR
     Route: 058

REACTIONS (17)
  - Abdominal discomfort [Recovered/Resolved]
  - Blood immunoglobulin E increased [Not Recovered/Not Resolved]
  - Haematemesis [Recovered/Resolved]
  - Abdominal pain upper [Recovered/Resolved]
  - Gastritis erosive [Not Recovered/Not Resolved]
  - Helicobacter gastritis [Recovered/Resolved]
  - Gastritis [Not Recovered/Not Resolved]
  - Dyspnoea [Recovered/Resolved]
  - Dyspnoea [Not Recovered/Not Resolved]
  - Livedo reticularis [Recovered/Resolved]
  - Hiatus hernia [Recovered/Resolved]
  - Product dose omission issue [Unknown]
  - Limb discomfort [Not Recovered/Not Resolved]
  - Abdominal pain upper [Recovered/Resolved]
  - Mental disorder [Recovering/Resolving]
  - Memory impairment [Not Recovered/Not Resolved]
  - Hiatus hernia [Recovering/Resolving]

NARRATIVE: CASE EVENT DATE: 20241201
